FAERS Safety Report 4613741-8 (Version None)
Quarter: 2005Q1

REPORT INFORMATION
  Report Type: 
  Country: None (occurrence: None)
  Receive Date: 20050321
  Receipt Date: 20050301
  Transmission Date: 20050727
  Serious: Yes (Death)
  Sender: FDA-Public Use
  Company Number: JP-BOEHRINGER INGELHEIM PHARMACEUTICALS, INC.-2005-BP-04106NB

PATIENT
  Age: 50 Year
  Sex: Female

DRUGS (4)
  1. SPIRIVA [Suspect]
     Indication: EMPHYSEMA
     Route: 055
     Dates: start: 20050224, end: 20050228
  2. THYRADIN [Suspect]
     Indication: HYPOTHYROIDISM
     Route: 048
     Dates: end: 20050228
  3. MEROPEN [Suspect]
     Indication: PNEUMONIA
     Route: 055
     Dates: end: 20050228
  4. DALACIN [Concomitant]
     Dates: end: 20050301

REACTIONS (4)
  - ABDOMINAL DISTENSION [None]
  - DEHYDRATION [None]
  - DISSEMINATED INTRAVASCULAR COAGULATION [None]
  - HEPATIC FUNCTION ABNORMAL [None]
